FAERS Safety Report 7738849-X (Version None)
Quarter: 2011Q3

REPORT INFORMATION
  Report Type: 
  Country: None (occurrence: None)
  Receive Date: 20110909
  Receipt Date: 20110831
  Transmission Date: 20111222
  Serious: Yes (Other)
  Sender: FDA-Public Use
  Company Number: US-BIOGENIDEC-2011BI030685

PATIENT
  Sex: Female

DRUGS (1)
  1. TYSABRI [Suspect]
     Indication: MULTIPLE SCLEROSIS
     Route: 042
     Dates: start: 20060913

REACTIONS (4)
  - CRANIOCEREBRAL INJURY [None]
  - FALL [None]
  - MEMORY IMPAIRMENT [None]
  - MOBILITY DECREASED [None]
